FAERS Safety Report 9080957 (Version 1)
Quarter: 2013Q1

REPORT INFORMATION
  Report Type: Report from Study
  Country: US (occurrence: US)
  Receive Date: 20130130
  Receipt Date: 20130130
  Transmission Date: 20140127
  Serious: No
  Sender: FDA-Public Use
  Company Number: US-ABBOTT-12P-163-0966455-00

PATIENT
  Sex: Female

DRUGS (10)
  1. HUMIRA 40 MG/0.8 ML PEN [Suspect]
     Indication: PSORIASIS
     Dates: start: 201204, end: 20120703
  2. AMIODARONE [Concomitant]
     Indication: HYPERTENSION
     Dosage: 1 DAILY
  3. PLAVIX [Concomitant]
     Indication: CARDIAC DISORDER
     Dosage: 1 DAILY
  4. PRAVASTATIN [Concomitant]
     Indication: BLOOD CHOLESTEROL INCREASED
     Dosage: 1 DAILY
  5. LISINOPRIL [Concomitant]
     Indication: HYPERTENSION
     Dosage: 1 DAILY
  6. METOPROLOL [Concomitant]
     Indication: HYPERTENSION
     Dosage: 1 DAILY
  7. HYDROCHLOROTHIAZIDE [Concomitant]
     Indication: HYPERTENSION
     Dosage: 1 IN AM
  8. POTASSIUM [Concomitant]
     Indication: PRODUCT USED FOR UNKNOWN INDICATION
  9. ASPIRIN [Concomitant]
     Indication: PRODUCT USED FOR UNKNOWN INDICATION
     Dosage: 1 DAILY
  10. IRON [Concomitant]
     Indication: ANAEMIA
     Dosage: 325MG DAILY

REACTIONS (1)
  - Drug ineffective [Not Recovered/Not Resolved]
